FAERS Safety Report 6988734-6 (Version None)
Quarter: 2010Q3

REPORT INFORMATION
  Report Type: 
  Country: None (occurrence: None)
  Receive Date: 20100916
  Receipt Date: 20100909
  Transmission Date: 20110219
  Serious: Yes (Other)
  Sender: FDA-Public Use
  Company Number: US-RB-014402-10

PATIENT
  Sex: Male

DRUGS (2)
  1. SUBOXONE [Suspect]
     Indication: DRUG DEPENDENCE
     Route: 060
     Dates: start: 20100801
  2. XANAX [Suspect]
     Indication: ANXIETY DISORDER
     Route: 048

REACTIONS (4)
  - CONSTIPATION [None]
  - CONVULSION [None]
  - DRY MOUTH [None]
  - EUPHORIC MOOD [None]
